FAERS Safety Report 18151252 (Version 1)
Quarter: 2020Q3

REPORT INFORMATION
  Report Type: Report from Study
  Country: KR (occurrence: KR)
  Receive Date: 20200814
  Receipt Date: 20200814
  Transmission Date: 20201103
  Serious: Yes (Death)
  Sender: FDA-Public Use
  Company Number: KR-PFIZER INC-2020313704

PATIENT

DRUGS (5)
  1. FLUDARABINE PHOSPHATE. [Suspect]
     Active Substance: FLUDARABINE PHOSPHATE
     Indication: NON-HODGKIN^S LYMPHOMA
     Dosage: 30 MG/M2, CYCLIC
  2. ITRACONAZOLE. [Concomitant]
     Active Substance: ITRACONAZOLE
     Indication: ANTIFUNGAL PROPHYLAXIS
     Dosage: UNK
  3. ACYCLOVIR [ACICLOVIR] [Concomitant]
     Active Substance: ACYCLOVIR
     Indication: ANTIVIRAL PROPHYLAXIS
     Dosage: UNK
  4. METHOTREXATE SODIUM. [Concomitant]
     Active Substance: METHOTREXATE SODIUM
     Indication: PROPHYLAXIS AGAINST GRAFT VERSUS HOST DISEASE
     Dosage: UNK
  5. MELPHALAN. [Suspect]
     Active Substance: MELPHALAN
     Indication: NON-HODGKIN^S LYMPHOMA REFRACTORY
     Dosage: 70 MG/M2 FOR 1 DAY

REACTIONS (1)
  - Venoocclusive disease [Fatal]
